FAERS Safety Report 8933920 (Version 1)
Quarter: 2012Q4

REPORT INFORMATION
  Report Type: 
  Country: RO (occurrence: RO)
  Receive Date: 20121129
  Receipt Date: 20121129
  Transmission Date: 20130627
  Serious: Yes (Hospitalization)
  Sender: FDA-Public Use
  Company Number: RO-PFIZER INC-2012298435

PATIENT
  Age: 64 Year
  Sex: Male

DRUGS (5)
  1. SORTIS [Suspect]
     Indication: ACUTE MYOCARDIAL INFARCTION
     Dosage: 80 mg
     Route: 048
     Dates: start: 20120918, end: 20120921
  2. NORVASC [Concomitant]
     Dosage: 10 mg, once daily
  3. CLOPIDOGREL [Concomitant]
     Dosage: 75 mg, once daily
     Route: 048
  4. PRITOR [Concomitant]
     Dosage: 80 mg, once daily
     Route: 048
  5. SIOFOR [Concomitant]
     Dosage: UNK

REACTIONS (1)
  - Hepatocellular injury [Recovered/Resolved]
